FAERS Safety Report 17769186 (Version 7)
Quarter: 2021Q1

REPORT INFORMATION
  Report Type: Spontaneous
  Country: US (occurrence: US)
  Receive Date: 20200512
  Receipt Date: 20210225
  Transmission Date: 20210419
  Serious: Yes (Other)
  Sender: FDA-Public Use
  Company Number: US-SA-2020SA119512

PATIENT
  Age: 74 Year
  Sex: Male

DRUGS (2)
  1. ZANTAC 150 (RANITIDINE HYDROCHLORIDE) [Suspect]
     Active Substance: RANITIDINE HYDROCHLORIDE
     Indication: DYSPEPSIA
     Dosage: UNK, QD (150?300MG OF ZANTAC DAILYFOR DECADES)
     Dates: start: 1988, end: 201512
  2. MORPHINE [Concomitant]
     Active Substance: MORPHINE

REACTIONS (18)
  - Head and neck cancer [Unknown]
  - Condition aggravated [Recovered/Resolved]
  - Renal cancer stage IV [Unknown]
  - Occult blood positive [Unknown]
  - Neoplasm malignant [Unknown]
  - Weight decreased [Unknown]
  - Colorectal cancer [Unknown]
  - Pain in extremity [Recovered/Resolved]
  - Abdominal lymphadenopathy [Unknown]
  - Renal disorder [Unknown]
  - Hepatic lesion [Unknown]
  - Musculoskeletal pain [Unknown]
  - Arthralgia [Recovering/Resolving]
  - Colon cancer stage IV [Unknown]
  - Back disorder [Unknown]
  - Anxiety [Unknown]
  - Back pain [Unknown]
  - Asthenia [Unknown]

NARRATIVE: CASE EVENT DATE: 2019
